FAERS Safety Report 5601857-9 (Version None)
Quarter: 2008Q1

REPORT INFORMATION
  Report Type: 
  Country: None (occurrence: None)
  Receive Date: 20080124
  Receipt Date: 20080116
  Transmission Date: 20080703
  Serious: Yes (Other)
  Sender: FDA-Public Use
  Company Number: GB-PFIZER INC-2008006099

PATIENT
  Age: 64 Year
  Sex: Male
  Weight: 82.7 kg

DRUGS (3)
  1. CHANTIX [Suspect]
     Indication: SMOKING CESSATION THERAPY
     Route: 048
     Dates: start: 20071221, end: 20080101
  2. BENDROFLUMETHIAZIDE [Concomitant]
     Route: 048
  3. RAMIPRIL [Concomitant]
     Route: 048

REACTIONS (2)
  - DYSURIA [None]
  - HAEMATURIA [None]
